FAERS Safety Report 25615202 (Version 2)
Quarter: 2025Q3

REPORT INFORMATION
  Report Type: Spontaneous
  Country: MX (occurrence: MX)
  Receive Date: 20250729
  Receipt Date: 20250918
  Transmission Date: 20251021
  Serious: Yes (Other)
  Sender: NOVO NORDISK
  Company Number: MX-NOVOPROD-1461005

PATIENT
  Age: 51 Year
  Sex: Female
  Weight: 89 kg

DRUGS (12)
  1. RYBELSUS [Suspect]
     Active Substance: SEMAGLUTIDE
     Indication: Blood insulin abnormal
     Dosage: 3 MG, QD
     Route: 048
     Dates: start: 202504
  2. RYBELSUS [Suspect]
     Active Substance: SEMAGLUTIDE
     Indication: Weight control
     Dosage: 3 MG, QD (RESTART)
     Route: 048
     Dates: start: 202506
  3. RYBELSUS [Suspect]
     Active Substance: SEMAGLUTIDE
     Indication: Blood insulin abnormal
     Dosage: 7 MG, QD
     Route: 048
     Dates: start: 202505, end: 202506
  4. RYBELSUS [Suspect]
     Active Substance: SEMAGLUTIDE
     Indication: Weight control
     Dosage: 3 MG, QD (DOSE DECREASED)
     Route: 048
  5. RYBELSUS [Suspect]
     Active Substance: SEMAGLUTIDE
     Indication: Cushing^s syndrome
  6. ARDOSONS [Concomitant]
     Indication: Product used for unknown indication
  7. NUCLEO CMP [Concomitant]
     Indication: Arthralgia
  8. IBUPROFEN [Concomitant]
     Active Substance: IBUPROFEN
     Indication: Dizziness
     Dosage: 400 MG, BID
  9. IBUPROFEN [Concomitant]
     Active Substance: IBUPROFEN
     Indication: Headache
  10. IBUPROFEN [Concomitant]
     Active Substance: IBUPROFEN
     Indication: Pain in extremity
  11. IBUPROFEN [Concomitant]
     Active Substance: IBUPROFEN
     Indication: Bone pain
  12. VITAMIN D NOS [Concomitant]
     Active Substance: CHOLECALCIFEROL\ERGOCALCIFEROL
     Indication: Muscle spasms

REACTIONS (15)
  - Endometrial neoplasm [Unknown]
  - Eye irritation [Recovering/Resolving]
  - Back pain [Recovering/Resolving]
  - Peripheral swelling [Recovering/Resolving]
  - Skin burning sensation [Recovering/Resolving]
  - Skin burning sensation [Recovering/Resolving]
  - Musculoskeletal chest pain [Unknown]
  - Glucose tolerance impaired [Unknown]
  - Constipation [Recovering/Resolving]
  - Gastritis [Recovering/Resolving]
  - Renal pain [Recovering/Resolving]
  - Abdominal pain upper [Unknown]
  - Product after taste [Not Recovered/Not Resolved]
  - Off label use [Unknown]
  - Off label use [Recovered/Resolved]

NARRATIVE: CASE EVENT DATE: 20250401
